FAERS Safety Report 4371814-1 (Version None)
Quarter: 2004Q2

REPORT INFORMATION
  Report Type: 
  Country: None (occurrence: None)
  Receive Date: 20040602
  Receipt Date: 20040512
  Transmission Date: 20050107
  Serious: Yes (Other)
  Sender: FDA-Public Use
  Company Number: US013240

PATIENT
  Age: 7 Year
  Sex: Male

DRUGS (2)
  1. MODAFINIL [Suspect]
     Indication: ATTENTION DEFICIT/HYPERACTIVITY DISORDER
     Dosage: MG QD ORAL
     Route: 048
     Dates: start: 20040330, end: 20040415
  2. MODAFINIL [Suspect]
     Indication: ATTENTION DEFICIT/HYPERACTIVITY DISORDER
     Dosage: MG DAILY ORAL
     Route: 048
     Dates: start: 20040425, end: 20040425

REACTIONS (4)
  - COXSACKIE VIRAL INFECTION [None]
  - DRUG ERUPTION [None]
  - ERYTHEMA MULTIFORME [None]
  - STEVENS-JOHNSON SYNDROME [None]
